FAERS Safety Report 4387275-2 (Version None)
Quarter: 2004Q2

REPORT INFORMATION
  Report Type: 
  Country: None (occurrence: None)
  Receive Date: 20040630
  Receipt Date: 20040402
  Transmission Date: 20050107
  Serious: No
  Sender: FDA-Public Use
  Company Number: US-GLAXOSMITHKLINE-A0505688A

PATIENT
  Sex: Female

DRUGS (3)
  1. ADVAIR HFA [Suspect]
     Indication: ASTHMA
     Dosage: 1PUFF TWICE PER DAY
     Route: 055
     Dates: start: 20020101, end: 20040101
  2. ANTI-DIABETIC MEDICATION [Concomitant]
  3. HYPERTENSION MED [Concomitant]

REACTIONS (2)
  - CHOKING SENSATION [None]
  - DYSPNOEA [None]
